FAERS Safety Report 23426860 (Version 1)
Quarter: 2024Q1

REPORT INFORMATION
  Report Type: Report from Study
  Country: CO (occurrence: CO)
  Receive Date: 20240122
  Receipt Date: 20240122
  Transmission Date: 20240409
  Serious: Yes (Hospitalization)
  Sender: FDA-Public Use
  Company Number: CO-ASTELLAS-2024US001774

PATIENT
  Age: 43 Year
  Sex: Female

DRUGS (1)
  1. TACROLIMUS [Suspect]
     Active Substance: TACROLIMUS
     Indication: Renal transplant
     Dosage: 3 MG, ONCE DAILY (3 CAPSULES OF 1 MG)
     Route: 048
     Dates: start: 20230331

REACTIONS (3)
  - Discomfort [Unknown]
  - Abdominal pain [Unknown]
  - Headache [Unknown]
